FAERS Safety Report 24086243 (Version 1)
Quarter: 2024Q3

REPORT INFORMATION
  Report Type: Spontaneous
  Country: ES (occurrence: ES)
  Receive Date: 20240712
  Receipt Date: 20240712
  Transmission Date: 20241016
  Serious: Yes (Hospitalization, Other)
  Sender: TEVA
  Company Number: None

PATIENT
  Age: 32 Year
  Sex: Female

DRUGS (5)
  1. BENDAMUSTINE [Suspect]
     Active Substance: BENDAMUSTINE
     Indication: Hodgkin^s disease
     Dosage: TIME INTERVAL: CYCLICAL: 180 MG CYCLIC, 2 EVERY 28 DAYS,  (8103A)
     Route: 042
     Dates: start: 20230420
  2. DECAPEPTYL MENSUAL [Concomitant]
     Indication: Hodgkin^s disease
     Dosage: 3.75 MG EVERY 28 DAYS?3.75 MG C/28 DIAS? 3,75 MG POLVO Y DISOLVENTE PARA SUSPENSION DE LIBERACION...
     Route: 030
     Dates: start: 20220701
  3. IBIS [Concomitant]
     Indication: Urticaria
     Dosage: 20.0 MG DECOCE,  20 MG COMPRIMIDOS , 20 COMPRIMIDOS
     Route: 048
     Dates: start: 20230504
  4. BRENTUXIMAB VEDOTIN [Suspect]
     Active Substance: BRENTUXIMAB VEDOTIN
     Indication: Hodgkin^s disease
     Dosage: TIME INTERVAL: 1 CYCLICAL: 150MG- CYCLE 2 EVERY 21 DAYS?150 MG-CICLO 2 C/21 DIAS (8452A)
     Route: 042
     Dates: start: 20230420
  5. ZOFRAN [Concomitant]
     Active Substance: ONDANSETRON HYDROCHLORIDE
     Indication: Hodgkin^s disease
     Dosage: 8.0 MG A-DECOCE
     Route: 048
     Dates: start: 20220818

REACTIONS (3)
  - Pyrexia [Recovered/Resolved]
  - Hodgkin^s disease [Recovered/Resolved]
  - Off label use [Recovered/Resolved]

NARRATIVE: CASE EVENT DATE: 20230518
